FAERS Safety Report 9655751 (Version 2)
Quarter: 2013Q4

REPORT INFORMATION
  Report Type: Spontaneous
  Country: US (occurrence: US)
  Receive Date: 20131030
  Receipt Date: 20131118
  Transmission Date: 20140711
  Serious: No
  Sender: FDA-Public Use
  Company Number: US-BIOGENIDEC-2013BI091793

PATIENT
  Age: 46 Year
  Sex: Male

DRUGS (7)
  1. AVONEX [Suspect]
     Indication: MULTIPLE SCLEROSIS
     Route: 030
  2. AVONEX [Suspect]
     Indication: MULTIPLE SCLEROSIS
     Route: 030
     Dates: start: 20130807, end: 201309
  3. AVONEX [Suspect]
     Indication: MULTIPLE SCLEROSIS
     Route: 030
     Dates: start: 20130807, end: 201309
  4. AMPYRA [Concomitant]
     Dates: start: 201308, end: 2013
  5. ZANTAC [Concomitant]
  6. ADVIL [Concomitant]
  7. ALOE VERA [Concomitant]

REACTIONS (9)
  - Adverse event [Unknown]
  - Underdose [Unknown]
  - Hypoaesthesia [Unknown]
  - Chromaturia [Unknown]
  - Renal pain [Unknown]
  - Influenza like illness [Recovered/Resolved]
  - Neck pain [Unknown]
  - Paraesthesia [Unknown]
  - Injection site pain [Unknown]
